FAERS Safety Report 4902818-5 (Version None)
Quarter: 2006Q1

REPORT INFORMATION
  Report Type: 
  Country: None (occurrence: None)
  Receive Date: 20060113
  Receipt Date: 20041214
  Transmission Date: 20060701
  Serious: Yes (Hospitalization, Other)
  Sender: FDA-Public Use
  Company Number: HQWYE032616DEC04

PATIENT
  Sex: Female

DRUGS (1)
  1. PREMPRO [Suspect]
     Indication: OESTROGEN REPLACEMENT THERAPY
     Dosage: ORAL
     Route: 048

REACTIONS (18)
  - ABDOMINAL PAIN [None]
  - ALOPECIA [None]
  - BLOOD GLUCOSE FLUCTUATION [None]
  - BREAST TENDERNESS [None]
  - CANDIDIASIS [None]
  - CONDITION AGGRAVATED [None]
  - DEPRESSION [None]
  - DIABETES MELLITUS [None]
  - DIZZINESS [None]
  - GALLBLADDER DISORDER [None]
  - METRORRHAGIA [None]
  - MIGRAINE [None]
  - MUSCLE SPASMS [None]
  - NAUSEA [None]
  - PULMONARY EMBOLISM [None]
  - THROMBOSIS [None]
  - VOMITING [None]
  - WEIGHT [None]
